FAERS Safety Report 4456126-X (Version None)
Quarter: 2004Q3

REPORT INFORMATION
  Report Type: 
  Country: None (occurrence: None)
  Receive Date: 20040920
  Receipt Date: 20040906
  Transmission Date: 20050211
  Serious: Yes (Life-Threatening, Other)
  Sender: FDA-Public Use
  Company Number: 2002060977

PATIENT
  Sex: Male
  Weight: 3 kg

DRUGS (3)
  1. PHENYTOIN SODIUM [Suspect]
     Indication: CONVULSION NEONATAL
     Dosage: 60 MG (1 IN 1 D), INTRAVENOUS
     Route: 042
     Dates: start: 20020919, end: 20020919
  2. CEFOXITIN (CEFOXITIN) [Concomitant]
  3. PHENOBARBITAL TAB [Concomitant]

REACTIONS (11)
  - CATHETER SITE RELATED REACTION [None]
  - GENERALISED ERYTHEMA [None]
  - HYPOXIC ENCEPHALOPATHY [None]
  - ISCHAEMIA [None]
  - NEONATAL DISORDER [None]
  - NEONATAL HYPOTENSION [None]
  - OBSTRUCTIVE AIRWAYS DISORDER [None]
  - RASH ERYTHEMATOUS [None]
  - SKIN DISCOLOURATION [None]
  - STRIDOR [None]
  - TRACHEAL DISORDER [None]
